FAERS Safety Report 8609094-0 (Version None)
Quarter: 2012Q3

REPORT INFORMATION
  Report Type: 
  Country: None (occurrence: None)
  Receive Date: 20120821
  Receipt Date: 20120814
  Transmission Date: 20120928
  Serious: Yes (Other)
  Sender: FDA-Public Use
  Company Number: US-JNJFOC-20120521101

PATIENT
  Sex: Female

DRUGS (4)
  1. DOXORUBICIN HYDROCHLORIDE [Suspect]
     Indication: OVARIAN CANCER RECURRENT
     Dosage: AFTER 6 CYCLES INDUCTION, MAINTAINED ON DOXORUBICIN FOR APPROXIMATELY 11 YEARS
     Route: 042
  2. CARBOPLATIN [Suspect]
     Indication: OVARIAN CANCER RECURRENT
     Dosage: COMPLETED 6 CYCLES
     Route: 065
  3. TOPOTECAN HYDROCHLORIDE [Suspect]
     Indication: OVARIAN CANCER RECURRENT
     Dosage: COMPLETED 6 CYCLES
     Route: 065
  4. PACLITAXEL [Suspect]
     Indication: OVARIAN CANCER RECURRENT
     Dosage: COMPLETED 6 CYCLES
     Route: 065

REACTIONS (1)
  - LIP AND/OR ORAL CAVITY CANCER [None]
